FAERS Safety Report 4280497-0 (Version None)
Quarter: 2004Q1

REPORT INFORMATION
  Report Type: 
  Country: None (occurrence: None)
  Receive Date: 20040127
  Receipt Date: 20030115
  Transmission Date: 20041129
  Serious: Yes (Hospitalization)
  Sender: FDA-Public Use
  Company Number: 2004SE00196

PATIENT
  Age: 22 Year
  Sex: Female
  Weight: 50 kg

DRUGS (5)
  1. SEROQUEL [Suspect]
     Indication: ABNORMAL BEHAVIOUR
     Dosage: 50 MG HS PO
     Route: 048
     Dates: start: 20031002
  2. TEGRETOL [Suspect]
     Dosage: 400 MG BID
  3. TOPAMAX [Concomitant]
  4. CIPRAMIL [Concomitant]
  5. MIRENA [Concomitant]

REACTIONS (5)
  - DRUG TOXICITY [None]
  - FACIAL PALSY [None]
  - HEADACHE [None]
  - OPHTHALMOPLEGIA [None]
  - TEMPORAL LOBE EPILEPSY [None]
